FAERS Safety Report 10865550 (Version 1)
Quarter: 2015Q1

REPORT INFORMATION
  Report Type: Report from Study
  Country: US (occurrence: US)
  Receive Date: 20150224
  Receipt Date: 20150224
  Transmission Date: 20150721
  Serious: No
  Sender: FDA-Public Use
  Company Number: US-MYLANLABS-2014S1016255

PATIENT
  Age: 18 Year
  Sex: Male

DRUGS (5)
  1. CLARAVIS [Suspect]
     Active Substance: ISOTRETINOIN
     Indication: ACNE
  2. AMNESTEEM [Suspect]
     Active Substance: ISOTRETINOIN
     Indication: ACNE
     Dosage: 10 MG,QD
     Route: 048
     Dates: start: 201403, end: 20140703
  3. CLARAVIS [Suspect]
     Active Substance: ISOTRETINOIN
     Dosage: 20 MG,QD
     Route: 048
     Dates: start: 201309, end: 201403
  4. CLARAVIS [Suspect]
     Active Substance: ISOTRETINOIN
     Indication: ACNE
     Dosage: UNK
     Route: 048
     Dates: start: 201306, end: 201308
  5. CLARAVIS [Suspect]
     Active Substance: ISOTRETINOIN
     Dosage: 20 MG,QD
     Route: 048
     Dates: start: 201305, end: 201306

REACTIONS (3)
  - Acne [Not Recovered/Not Resolved]
  - Drug ineffective [Not Recovered/Not Resolved]
  - Blood triglycerides increased [Not Recovered/Not Resolved]

NARRATIVE: CASE EVENT DATE: 201305
